FAERS Safety Report 21784497 (Version 1)
Quarter: 2022Q4

REPORT INFORMATION
  Report Type: Spontaneous
  Country: BR (occurrence: BR)
  Receive Date: 20221227
  Receipt Date: 20221227
  Transmission Date: 20230113
  Serious: Yes (Life-Threatening, Hospitalization, Other)
  Sender: FDA-Public Use
  Company Number: BR-PFIZER INC-2020242705

PATIENT
  Age: 61 Year
  Sex: Female

DRUGS (7)
  1. SUTENT [Suspect]
     Active Substance: SUNITINIB MALATE
     Dosage: 12.5 MG + 25 MG
     Dates: start: 20200327, end: 2020
  2. SUTENT [Suspect]
     Active Substance: SUNITINIB MALATE
     Dosage: 50 MG, UNK
     Dates: start: 20200527, end: 2020
  3. SUTENT [Suspect]
     Active Substance: SUNITINIB MALATE
     Dosage: 50 MG, UNK
     Dates: start: 20200527, end: 2020
  4. SUTENT [Suspect]
     Active Substance: SUNITINIB MALATE
     Dosage: 37.5 MG (12.5 MG + 25 MG), UNK
     Dates: start: 2020
  5. SUTENT [Suspect]
     Active Substance: SUNITINIB MALATE
     Dosage: 37.5 MG (12.5 MG + 25 MG), CYCLIC (THREE WEEKS OF USE AND ONE WEEK OF BREAK)
  6. SUTENT [Suspect]
     Active Substance: SUNITINIB MALATE
     Dosage: 37.5 MG (12.5 MG + 25 MG), CYCLIC (THREE WEEKS OF USE AND ONE WEEK OF BREAK)
  7. SUTENT [Suspect]
     Active Substance: SUNITINIB MALATE
     Dosage: 12.5 MG AND 50 MG

REACTIONS (15)
  - Seizure [Unknown]
  - Yellow skin [Unknown]
  - Dry skin [Not Recovered/Not Resolved]
  - Nausea [Unknown]
  - Eye swelling [Not Recovered/Not Resolved]
  - Blister [Recovering/Resolving]
  - Eyelid disorder [Unknown]
  - Visual impairment [Unknown]
  - Thyroid disorder [Unknown]
  - Skin swelling [Recovering/Resolving]
  - Skin exfoliation [Not Recovered/Not Resolved]
  - Skin haemorrhage [Unknown]
  - Pyrexia [Unknown]
  - Neoplasm progression [Unknown]
  - Skin fissures [Unknown]

NARRATIVE: CASE EVENT DATE: 20200101
